FAERS Safety Report 8555910 (Version 2)
Quarter: 2012Q4

REPORT INFORMATION
  Report Type: 
  Country: US (occurrence: US)
  Receive Date: 20120510
  Receipt Date: 20121219
  Transmission Date: 20130627
  Serious: Yes (Hospitalization, Other)
  Sender: FDA-Public Use
  Company Number: US-BAYER-2012-044252

PATIENT
  Age: 18 Year
  Sex: Female

DRUGS (8)
  1. YAZ [Suspect]
     Indication: BIRTH CONTROL
     Dosage: UNK
     Dates: start: 200904, end: 201102
  2. SINGULAIR [Concomitant]
     Dosage: 10 mg, every evening
     Dates: start: 200907
  3. SINGULAIR [Concomitant]
     Dosage: 5mg daily
  4. NABUMETONE [Concomitant]
     Dosage: UNK
     Dates: start: 201102
  5. PROMETHAZINE [Concomitant]
     Dosage: UNK
     Dates: start: 201102
  6. TRAMADOL [Concomitant]
     Dosage: UNK
     Dates: start: 201102
  7. YASMIN [Suspect]
  8. OCELLA [Suspect]

REACTIONS (9)
  - Superior sagittal sinus thrombosis [None]
  - Pulmonary embolism [None]
  - Deep vein thrombosis [None]
  - Injury [None]
  - Pain [None]
  - Emotional distress [None]
  - General physical health deterioration [None]
  - Anxiety [None]
  - Pain [None]
